FAERS Safety Report 17060690 (Version 1)
Quarter: 2019Q4

REPORT INFORMATION
  Report Type: Spontaneous
  Country: FR (occurrence: FR)
  Receive Date: 20191121
  Receipt Date: 20191121
  Transmission Date: 20200122
  Serious: Yes (Other)
  Sender: FDA-Public Use
  Company Number: FR-MYLANLABS-2019M1111620

PATIENT
  Age: 21 Year
  Sex: Female

DRUGS (2)
  1. LEVETIRACETAM. [Suspect]
     Active Substance: LEVETIRACETAM
     Indication: EPILEPSY
     Dosage: INCREASED TO 1000MG /DAY IN THIRD TRIMESTER
  2. LEVETIRACETAM. [Suspect]
     Active Substance: LEVETIRACETAM
     Dosage: 750 MILLIGRAM, QD

REACTIONS (5)
  - Maternal exposure during breast feeding [Unknown]
  - Myoclonus [Unknown]
  - Maternal exposure during pregnancy [Recovered/Resolved]
  - Threatened labour [Unknown]
  - Premature rupture of membranes [Unknown]
